FAERS Safety Report 18423715 (Version 9)
Quarter: 2021Q1

REPORT INFORMATION
  Report Type: Spontaneous
  Country: GR (occurrence: GR)
  Receive Date: 20201024
  Receipt Date: 20210209
  Transmission Date: 20210419
  Serious: Yes (Disabling, Other)
  Sender: FDA-Public Use
  Company Number: GR-009507513-2006GRC004135

PATIENT
  Age: 36 Year
  Sex: Male

DRUGS (3)
  1. ABILIFY MAINTENA [Suspect]
     Active Substance: ARIPIPRAZOLE
     Indication: SCHIZOPHRENIA
     Dosage: UNK
     Route: 065
  2. REMERON [Suspect]
     Active Substance: MIRTAZAPINE
     Indication: SLEEP DISORDER
     Dosage: 1/2 TABLET AT NIGHT
     Route: 048
  3. MINITRAN (AMITRIPTYLINE HYDROCHLORIDE (+) PERPHENAZINE) [Suspect]
     Active Substance: AMITRIPTYLINE HYDROCHLORIDE\PERPHENAZINE
     Indication: SCHIZOPHRENIA
     Dosage: 3 DF, QD (EVERY MORNING, AFTERNOON AND IN THE EVENING)
     Route: 065

REACTIONS (6)
  - Suicidal ideation [Unknown]
  - Apnoea [Unknown]
  - Tachycardia [Unknown]
  - Product use in unapproved indication [Unknown]
  - Homicidal ideation [Unknown]
  - Drug ineffective [Unknown]

NARRATIVE: CASE EVENT DATE: 202010
